FAERS Safety Report 11597161 (Version 1)
Quarter: 2015Q4

REPORT INFORMATION
  Report Type: Report from Study
  Country: US (occurrence: US)
  Receive Date: 20151006
  Receipt Date: 20151006
  Transmission Date: 20160304
  Serious: Yes (Hospitalization, Other)
  Sender: FDA-Public Use
  Company Number: US-BAYER-2014-098643

PATIENT
  Age: 62 Year
  Sex: Male

DRUGS (3)
  1. NEXAVAR [Suspect]
     Active Substance: SORAFENIB
     Indication: HEPATIC CANCER
     Dosage: 400 MG, BID
     Route: 048
     Dates: start: 20150425, end: 201505
  2. NEXAVAR [Suspect]
     Active Substance: SORAFENIB
     Indication: HEPATIC CANCER
     Dosage: 200 MG,BID
     Route: 048
     Dates: start: 20150607, end: 201509
  3. NEXAVAR [Suspect]
     Active Substance: SORAFENIB
     Indication: HEPATIC CANCER
     Dosage: 400 MG, BID
     Route: 048
     Dates: start: 20140607

REACTIONS (9)
  - Internal haemorrhage [None]
  - Internal haemorrhage [None]
  - Internal haemorrhage [None]
  - Joint swelling [None]
  - Tooth fracture [None]
  - Hypotension [Recovering/Resolving]
  - Diarrhoea [None]
  - Dental caries [None]
  - Muscle strain [None]

NARRATIVE: CASE EVENT DATE: 20140626
